FAERS Safety Report 14354585 (Version 1)
Quarter: 2018Q1

REPORT INFORMATION
  Report Type: Spontaneous
  Country: FR (occurrence: FR)
  Receive Date: 20180105
  Receipt Date: 20180105
  Transmission Date: 20180509
  Serious: Yes (Other)
  Sender: FDA-Public Use
  Company Number: FR-BIOVITRUM-2016FR1012

PATIENT
  Age: 59 Year
  Sex: Male

DRUGS (1)
  1. KINERET [Suspect]
     Active Substance: ANAKINRA
     Indication: PYODERMA GANGRENOSUM

REACTIONS (3)
  - Intestinal perforation [Unknown]
  - Diverticulitis [Unknown]
  - Drug eruption [Unknown]

NARRATIVE: CASE EVENT DATE: 2014
